FAERS Safety Report 9494526 (Version 2)
Quarter: 2013Q3

REPORT INFORMATION
  Report Type: Spontaneous
  Country: CN (occurrence: None)
  Receive Date: 20130828
  Receipt Date: 20130913
  Transmission Date: 20140515
  Serious: Yes (Hospitalization)
  Sender: FDA-Public Use
  Company Number: ALLO20130020

PATIENT
  Age: 13 Year
  Sex: Female

DRUGS (1)
  1. ALLOPURINOL [Suspect]
     Indication: HYPERURICAEMIA
     Route: 048

REACTIONS (7)
  - Blood potassium increased [None]
  - Drug reaction with eosinophilia and systemic symptoms [None]
  - Kidney enlargement [None]
  - Pyrexia [None]
  - Erythema [None]
  - Aspartate aminotransferase increased [None]
  - Alanine aminotransferase increased [None]
